FAERS Safety Report 15888229 (Version 1)
Quarter: 2019Q1

REPORT INFORMATION
  Report Type: Spontaneous
  Country: FR (occurrence: FR)
  Receive Date: 20190130
  Receipt Date: 20190130
  Transmission Date: 20190417
  Serious: Yes (Hospitalization)
  Sender: FDA-Public Use
  Company Number: FR-TEVA-2019-FR-1004379

PATIENT
  Age: 36 Year
  Sex: Male

DRUGS (3)
  1. DIAZEPAM. [Suspect]
     Active Substance: DIAZEPAM
     Indication: SCHIZOPHRENIA
     Dosage: 100 GTT
     Route: 048
     Dates: start: 20180824, end: 20180824
  2. SUBUTEX [Suspect]
     Active Substance: BUPRENORPHINE HYDROCHLORIDE
     Dosage: 72 MG
     Route: 048
     Dates: start: 20180824, end: 20180824
  3. THERALENE [Suspect]
     Active Substance: TRIMEPRAZINE
     Dates: start: 20180824, end: 20180824

REACTIONS (3)
  - Drug abuse [Recovering/Resolving]
  - Somnolence [Recovered/Resolved]
  - Overdose [Recovered/Resolved]

NARRATIVE: CASE EVENT DATE: 20180824
